FAERS Safety Report 6774807-X (Version None)
Quarter: 2010Q2

REPORT INFORMATION
  Report Type: 
  Country: None (occurrence: None)
  Receive Date: 20100617
  Receipt Date: 20100611
  Transmission Date: 20101027
  Serious: Yes (Hospitalization)
  Sender: FDA-Public Use
  Company Number: US-ROCHE-709280

PATIENT
  Sex: Female
  Weight: 55.8 kg

DRUGS (12)
  1. TOCILIZUMAB [Suspect]
     Indication: RHEUMATOID ARTHRITIS
     Dosage: LAST DOSE: 11 MAY 2010, DOSAGE FORM: INFUSION
     Route: 042
     Dates: start: 20080923
  2. BLINDED TOCILIZUMAB [Suspect]
     Indication: RHEUMATOID ARTHRITIS
     Dosage: LAST DOSE: 26 AUGUST 2008, DOSAGE FORM: INFUSION
     Route: 042
     Dates: start: 20080603
  3. METHOTREXATE [Concomitant]
     Dates: start: 20070907
  4. FOLIC ACID [Concomitant]
     Dates: start: 20060419
  5. LEUCOVORIN CALCIUM [Concomitant]
     Dates: start: 20060404
  6. PREDNISONE [Concomitant]
     Dates: start: 20080101
  7. FOSAMAX [Concomitant]
     Dates: start: 20061201
  8. PROTONIX [Concomitant]
     Dates: start: 20071101
  9. ZYRTEC [Concomitant]
     Dates: start: 20100328
  10. ADVIL LIQUI-GELS [Concomitant]
     Dates: start: 20100608, end: 20100609
  11. YAZ [Concomitant]
     Dosage: TDD: 1 TABLET
     Dates: start: 20000101
  12. ATENOLOL [Concomitant]
     Dosage: DOSE: 60 MG PRN
     Dates: start: 20071201

REACTIONS (1)
  - LYMPHADENITIS [None]
